FAERS Safety Report 4458187-0 (Version None)
Quarter: 2004Q3

REPORT INFORMATION
  Report Type: 
  Country: None (occurrence: None)
  Receive Date: 20040922
  Receipt Date: 20040913
  Transmission Date: 20050211
  Serious: Yes (Hospitalization)
  Sender: FDA-Public Use
  Company Number: CIP04001831

PATIENT
  Age: 86 Year
  Sex: Female

DRUGS (10)
  1. BENET(RISEDRONATE SODIUM) TABLET, 2.5MG [Suspect]
     Indication: OSTEOPOROSIS
     Dosage: 2.5 MG, DAILY, ORAL
     Route: 048
     Dates: start: 20031204, end: 20040809
  2. SOLETON (ZALTOPROFEN) [Suspect]
     Indication: BACK PAIN
     Dosage: 3 DF, DAILY, ORAL
     Route: 048
     Dates: start: 20031204, end: 20040809
  3. SELBEX (TEPRENONE) [Concomitant]
  4. BAYCARON (MEFRUSIDE) [Concomitant]
  5. BLOPRESS (CANDESARTAN CILEXETIL) [Concomitant]
  6. AMLODIN (AMMLODIPINE BESILATE) [Concomitant]
  7. DISOPYRAMIDE [Concomitant]
  8. ARICEPT [Concomitant]
  9. ALFAROL (ALFACALCIDOL) [Concomitant]
  10. METHYCOBAL (MECOBALAMIN) [Concomitant]

REACTIONS (25)
  - ACTIVATED PARTIAL THROMBOPLASTIN TIME SHORTENED [None]
  - ALBUMIN GLOBULIN RATIO DECREASED [None]
  - BLOOD ALBUMIN DECREASED [None]
  - BLOOD CREATININE INCREASED [None]
  - BLOOD IMMUNOGLOBULIN A INCREASED [None]
  - BLOOD IMMUNOGLOBULIN G INCREASED [None]
  - BLOOD LACTATE DEHYDROGENASE INCREASED [None]
  - BLOOD UREA INCREASED [None]
  - BLOOD URIC ACID INCREASED [None]
  - BONE MARROW DEPRESSION [None]
  - EOSINOPHIL COUNT INCREASED [None]
  - FIBRIN DEGRADATION PRODUCTS INCREASED [None]
  - HAEMATOCRIT DECREASED [None]
  - HAEMOGLOBIN DECREASED [None]
  - IMMUNOGLOBULINS INCREASED [None]
  - LYMPHOCYTE COUNT DECREASED [None]
  - LYMPHOCYTE STIMULATION TEST POSITIVE [None]
  - NEUTROPHIL PERCENTAGE INCREASED [None]
  - PROTEIN ALBUMIN RATIO DECREASED [None]
  - PROTEIN TOTAL INCREASED [None]
  - PROTEIN URINE PRESENT [None]
  - PURPURA [None]
  - RED BLOOD CELL COUNT DECREASED [None]
  - THROMBOCYTOPENIA [None]
  - URINARY OCCULT BLOOD POSITIVE [None]
